FAERS Safety Report 4304240-1 (Version None)
Quarter: 2004Q1

REPORT INFORMATION
  Report Type: 
  Country: None (occurrence: None)
  Receive Date: 20040225
  Receipt Date: 20040213
  Transmission Date: 20041129
  Serious: Yes (Hospitalization)
  Sender: FDA-Public Use
  Company Number: WAES 0402AUS00109

PATIENT
  Age: 68 Year
  Sex: Male

DRUGS (6)
  1. ASPIRIN [Concomitant]
  2. CAPTOPRIL [Concomitant]
  3. CITRIC ACID AND MAGNESIUM OXIDE AND PICOSULFATE SODIUM [Suspect]
     Dates: start: 19990722, end: 19990723
  4. FUROSEMIDE [Suspect]
     Indication: CARDIAC FAILURE CONGESTIVE
  5. PHENYTOIN [Concomitant]
  6. ZOCOR [Suspect]
     Route: 048
     Dates: end: 19990724

REACTIONS (3)
  - ALKALOSIS [None]
  - HYPOKALAEMIA [None]
  - RHABDOMYOLYSIS [None]
